FAERS Safety Report 18392030 (Version 1)
Quarter: 2020Q4

REPORT INFORMATION
  Report Type: Spontaneous
  Country: US (occurrence: US)
  Receive Date: 20201015
  Receipt Date: 20201015
  Transmission Date: 20210114
  Serious: Yes (Other)
  Sender: FDA-Public Use
  Company Number: None

PATIENT
  Sex: Female

DRUGS (14)
  1. DULOXETINE. [Concomitant]
     Active Substance: DULOXETINE
  2. ATORVASTATIN [Concomitant]
     Active Substance: ATORVASTATIN
  3. POT CL MICRO ER [Concomitant]
  4. MEKINIST [Suspect]
     Active Substance: TRAMETINIB DIMETHYL SULFOXIDE
     Indication: METASTASES TO CENTRAL NERVOUS SYSTEM
     Dosage: ?          OTHER DOSE:2 TABS;?
     Route: 048
     Dates: start: 20160714
  5. ESTRATEST [Concomitant]
     Active Substance: ESTROGENS, ESTERIFIED\METHYLTESTOSTERONE
  6. TRAZODONE [Concomitant]
     Active Substance: TRAZODONE HYDROCHLORIDE
  7. GABAPENTIN. [Concomitant]
     Active Substance: GABAPENTIN
  8. ONDANSETRON [Concomitant]
     Active Substance: ONDANSETRON
  9. ZOLOFT [Concomitant]
     Active Substance: SERTRALINE HYDROCHLORIDE
  10. TAFINLAR [Suspect]
     Active Substance: DABRAFENIB MESYLATE
     Dosage: ?          OTHER DOSE:1 CAP;?
     Route: 048
     Dates: start: 20160714
  11. LORAZEPAM. [Concomitant]
     Active Substance: LORAZEPAM
  12. MEMANTINE. [Concomitant]
     Active Substance: MEMANTINE
  13. TRAM ADOL HCL [Concomitant]
  14. DEXAMETHASON [Concomitant]
     Active Substance: DEXAMETHASONE

REACTIONS (1)
  - Metastases to central nervous system [None]
